FAERS Safety Report 4756841-4 (Version None)
Quarter: 2005Q3

REPORT INFORMATION
  Report Type: 
  Country: None (occurrence: None)
  Receive Date: 20050830
  Receipt Date: 20050822
  Transmission Date: 20060218
  Serious: No
  Sender: FDA-Public Use
  Company Number: US-JNJFOC-20050607036

PATIENT
  Sex: Female
  Weight: 68.95 kg

DRUGS (2)
  1. ELMIRON [Suspect]
     Route: 048
  2. ELMIRON [Suspect]
     Indication: CYSTITIS INTERSTITIAL
     Route: 048

REACTIONS (1)
  - ALOPECIA [None]
